FAERS Safety Report 10596526 (Version 1)
Quarter: 2014Q4

REPORT INFORMATION
  Report Type: Spontaneous
  Country: RU (occurrence: RU)
  Receive Date: 20141120
  Receipt Date: 20141120
  Transmission Date: 20150529
  Serious: Yes (Other)
  Sender: FDA-Public Use
  Company Number: RU-ASTRAZENECA-2014SE87289

PATIENT
  Age: 68 Year
  Sex: Male

DRUGS (2)
  1. CARDIOMAGNYL [Concomitant]
     Active Substance: ASPIRIN\MAGNESIUM HYDROXIDE
     Route: 048
  2. BRILINTA [Suspect]
     Active Substance: TICAGRELOR
     Route: 048

REACTIONS (5)
  - Bleeding time prolonged [Recovered/Resolved]
  - Thrombosis in device [Recovered/Resolved]
  - Gastric ulcer [Recovered/Resolved]
  - Angina unstable [Recovered/Resolved]
  - Wound haemorrhage [Recovered/Resolved]
